FAERS Safety Report 18597156 (Version 3)
Quarter: 2020Q4

REPORT INFORMATION
  Report Type: Report from Study
  Country: None (occurrence: US)
  Receive Date: 20201209
  Receipt Date: 20201221
  Transmission Date: 20210114
  Serious: Yes (Hospitalization)
  Sender: FDA-Public Use
  Company Number: US-ABBVIE-20P-163-3624567-00

PATIENT
  Age: 54 Year
  Sex: Male

DRUGS (7)
  1. 5-AZACYTIDINE [Concomitant]
     Active Substance: AZACITIDINE
     Indication: ACUTE MYELOID LEUKAEMIA
     Dosage: SUBCUTANEOUS OR INTRAVENOUS (SC OR IV) OVER 30-60 MINUTES ON DAYS 1-7
     Route: 065
     Dates: start: 20201022, end: 20201028
  2. VENETOCLAX. [Suspect]
     Active Substance: VENETOCLAX
     Indication: ACUTE MYELOID LEUKAEMIA
     Dosage: RAMP UP: DAY 1
     Route: 048
     Dates: start: 20201022
  3. MAGROLIMAB (MONOCLONAL ANTIBODIES) [Concomitant]
     Indication: ACUTE MYELOID LEUKAEMIA
     Dosage: DAY 1,4,8,11,15, 22 OF CYCLE 1
     Route: 042
     Dates: start: 20201022
  4. VENETOCLAX. [Suspect]
     Active Substance: VENETOCLAX
     Dosage: DAY 2
     Route: 048
  5. MAGROLIMAB (MONOCLONAL ANTIBODIES) [Concomitant]
     Dosage: ON DAYS 1,8,15,22 OF CYCLE 2
     Route: 042
     Dates: start: 20201026
  6. VENETOCLAX. [Suspect]
     Active Substance: VENETOCLAX
     Dosage: DAY 3-27
     Route: 048
     Dates: end: 20201117
  7. MAGROLIMAB (MONOCLONAL ANTIBODIES) [Concomitant]
     Dosage: ON DAYS 1,15 OF CYCLE 3, AND SUBSEQUENT CYCLES;  MOST RECENT DOSE WAS ON 17 NOV 2020
     Route: 042
     Dates: start: 20201029

REACTIONS (3)
  - Skin infection [Recovered/Resolved]
  - Soft tissue infection [Recovering/Resolving]
  - Osteomyelitis [Recovered/Resolved]

NARRATIVE: CASE EVENT DATE: 20201020
